FAERS Safety Report 9980661 (Version 1)
Quarter: 2014Q1

REPORT INFORMATION
  Report Type: Report from Study
  Country: US (occurrence: US)
  Receive Date: 20140307
  Receipt Date: 20140307
  Transmission Date: 20141002
  Serious: Yes (Other)
  Sender: FDA-Public Use
  Company Number: US-ROCHE-1356809

PATIENT
  Sex: Male
  Weight: 53.8 kg

DRUGS (2)
  1. SOMATROPIN [Suspect]
     Indication: BODY HEIGHT BELOW NORMAL
     Route: 065
     Dates: start: 2006, end: 2011
  2. SOMATROPIN [Suspect]
     Route: 065
     Dates: start: 2012, end: 2012

REACTIONS (1)
  - Growth retardation [Unknown]
